FAERS Safety Report 4664634-1 (Version None)
Quarter: 2005Q2

REPORT INFORMATION
  Report Type: 
  Country: None (occurrence: None)
  Receive Date: 20050518
  Receipt Date: 20050511
  Transmission Date: 20051028
  Serious: Yes (Hospitalization)
  Sender: FDA-Public Use
  Company Number: US-ROCHE-404386

PATIENT
  Age: 73 Year
  Sex: Female

DRUGS (5)
  1. CAPECITABINE [Suspect]
     Indication: BREAST CANCER
     Dosage: CYCLE 2 BEGAN 5 APRIL 2005
     Route: 048
     Dates: end: 20050409
  2. IXABEPILONE [Suspect]
     Indication: BREAST CANCER
     Dosage: CYCLE 2 BEGAN 5 APRIL 2005
     Route: 042
     Dates: end: 20050405
  3. SYNTHROID [Concomitant]
     Dates: start: 19950615
  4. ZOFRAN [Concomitant]
     Dates: start: 20050314
  5. COMPAZINE [Concomitant]
     Dates: start: 20050322

REACTIONS (6)
  - DEHYDRATION [None]
  - DIARRHOEA [None]
  - HYPONATRAEMIA [None]
  - LEUKOPENIA [None]
  - SYNCOPE [None]
  - VOMITING [None]
